FAERS Safety Report 5104217-2 (Version None)
Quarter: 2006Q3

REPORT INFORMATION
  Report Type: 
  Country: None (occurrence: None)
  Receive Date: 20060911
  Receipt Date: 20060824
  Transmission Date: 20061208
  Serious: Yes (Death, Hospitalization, Other)
  Sender: FDA-Public Use
  Company Number: 2006-DE-04433GD

PATIENT
  Age: 63 Year
  Sex: Male

DRUGS (7)
  1. NAPROXEN [Suspect]
     Indication: CANCER PAIN
     Dosage: 2 G , PO
     Route: 048
  2. MORPHINE [Suspect]
     Indication: CANCER PAIN
     Dosage: 1 MG/ML-SOLUTION ADMINISTERED WITH 2 ML TWICE DAILY, 3 ML EVERY 8 HOURS, 3 ML EVERY 2 HOURS (SEE TEX
     Route: 008
  3. TRAMADOL HCL [Suspect]
     Indication: CANCER PAIN
     Dosage: 200 MG, PO
     Route: 048
  4. AMITRIPTYLINE HCL [Suspect]
     Indication: CANCER PAIN
     Dosage: 50 MG, PO
     Route: 048
  5. DURAGESIC-100 [Suspect]
     Indication: CANCER PAIN
     Dosage: 100 MCG/HOUR, TD
     Route: 062
  6. BUPIVACAINE [Suspect]
     Indication: CANCER PAIN
     Dosage: SEE IMAGE
  7. KETAMINE HCL [Suspect]
     Indication: CANCER PAIN
     Dosage: SEE IMAGE
     Route: 008

REACTIONS (7)
  - BEDRIDDEN [None]
  - BURNING SENSATION [None]
  - INADEQUATE ANALGESIA [None]
  - NAUSEA [None]
  - PAIN [None]
  - SEDATION [None]
  - VOMITING [None]
